FAERS Safety Report 7527775-7 (Version None)
Quarter: 2011Q2

REPORT INFORMATION
  Report Type: 
  Country: None (occurrence: None)
  Receive Date: 20110607
  Receipt Date: 20110602
  Transmission Date: 20111010
  Serious: No
  Sender: FDA-Public Use
  Company Number: US-TEVA-282833USA

PATIENT
  Sex: Female

DRUGS (1)
  1. COPAXONE [Suspect]
     Indication: MULTIPLE SCLEROSIS
     Route: 058
     Dates: start: 20090810

REACTIONS (4)
  - INJECTION SITE SWELLING [None]
  - INJECTION SITE ANAESTHESIA [None]
  - INJECTION SITE ERYTHEMA [None]
  - INCORRECT ROUTE OF DRUG ADMINISTRATION [None]
